FAERS Safety Report 5923993-X (Version None)
Quarter: 2008Q4

REPORT INFORMATION
  Report Type: 
  Country: None (occurrence: None)
  Receive Date: 20081020
  Receipt Date: 20081009
  Transmission Date: 20090506
  Serious: Yes (Hospitalization, Other)
  Sender: FDA-Public Use
  Company Number: PHBS2008DE05953

PATIENT
  Sex: Female

DRUGS (2)
  1. CYCLOSPORINE [Suspect]
     Indication: RENAL TRANSPLANT
  2. MYCOPHENOLATE MOFETIL [Suspect]
     Indication: RENAL TRANSPLANT

REACTIONS (8)
  - ARTHRALGIA [None]
  - DEPRESSION [None]
  - EPSTEIN-BARR VIRUS INFECTION [None]
  - HERPES ZOSTER [None]
  - HIP DYSPLASIA [None]
  - INFECTION [None]
  - PAPILLOMA VIRAL INFECTION [None]
  - URINARY TRACT INFECTION [None]
